FAERS Safety Report 10447011 (Version 1)
Quarter: 2014Q3

REPORT INFORMATION
  Report Type: Spontaneous
  Country: US (occurrence: US)
  Receive Date: 20140911
  Receipt Date: 20140911
  Transmission Date: 20150326
  Serious: Yes (Hospitalization, Other)
  Sender: FDA-Public Use
  Company Number: US-AMGEN-USASP2014068558

PATIENT
  Age: 89 Year
  Sex: Female

DRUGS (9)
  1. GABAPENTIN. [Concomitant]
     Active Substance: GABAPENTIN
     Dosage: 300 MG, UNK
  2. BABY ASPIRIN [Concomitant]
     Active Substance: ASPIRIN
  3. VITAMIN D3 [Concomitant]
     Active Substance: CHOLECALCIFEROL
  4. COREG [Concomitant]
     Active Substance: CARVEDILOL
  5. VYTORIN [Concomitant]
     Active Substance: EZETIMIBE\SIMVASTATIN
  6. ISOSORBIDE [Concomitant]
     Active Substance: ISOSORBIDE
  7. AMLODIPINE BESYLATE. [Concomitant]
     Active Substance: AMLODIPINE BESYLATE
     Dosage: 10 MG, UNK
  8. PROLIA [Suspect]
     Active Substance: DENOSUMAB
     Indication: OSTEOPOROSIS POSTMENOPAUSAL
     Route: 065
  9. FUROSEMIDE. [Concomitant]
     Active Substance: FUROSEMIDE
     Dosage: 20 MG, UNK

REACTIONS (20)
  - Memory impairment [Unknown]
  - Fall [Unknown]
  - Bone pain [Unknown]
  - Asthenia [Unknown]
  - Pain in extremity [Unknown]
  - Joint injury [Unknown]
  - Dyspnoea [Unknown]
  - Loss of consciousness [Unknown]
  - Nerve compression [Unknown]
  - Arthralgia [Unknown]
  - Pain [Unknown]
  - Depression [Unknown]
  - Headache [Unknown]
  - Fatigue [Unknown]
  - Constipation [Unknown]
  - Femur fracture [Unknown]
  - Contusion [Unknown]
  - Cardiac pacemaker insertion [Unknown]
  - Sleep disorder due to general medical condition, insomnia type [Unknown]
  - Gait disturbance [Unknown]

NARRATIVE: CASE EVENT DATE: 201311
